FAERS Safety Report 8474255-0 (Version None)
Quarter: 2012Q2

REPORT INFORMATION
  Report Type: 
  Country: None (occurrence: None)
  Receive Date: 20120628
  Receipt Date: 20120618
  Transmission Date: 20120825
  Serious: Yes (Hospitalization)
  Sender: FDA-Public Use
  Company Number: CA-JNJFOC-20120608701

PATIENT
  Sex: Male
  Weight: 110 kg

DRUGS (10)
  1. MULTI-VITAMINS [Concomitant]
     Route: 065
  2. ACETAMINOPHEN [Concomitant]
     Route: 065
  3. MELOXICAM [Suspect]
     Indication: PRODUCT USED FOR UNKNOWN INDICATION
     Route: 065
  4. REMICADE [Suspect]
     Indication: CROHN'S DISEASE
     Route: 042
     Dates: start: 20070101
  5. IMURAN [Concomitant]
     Route: 048
  6. VALSARTAN [Concomitant]
     Route: 065
  7. CRESTOR [Concomitant]
     Route: 065
  8. OMEGA 3-6-9 [Concomitant]
     Route: 065
  9. IMURAN [Concomitant]
     Route: 048
  10. WARFARIN SODIUM [Suspect]
     Indication: ARRHYTHMIA
     Route: 065

REACTIONS (8)
  - GASTRIC ULCER [None]
  - ROTATOR CUFF SYNDROME [None]
  - MELAENA [None]
  - HEART RATE INCREASED [None]
  - FREQUENT BOWEL MOVEMENTS [None]
  - CONTUSION [None]
  - ARRHYTHMIA [None]
  - BLOOD PRESSURE INCREASED [None]
